FAERS Safety Report 6459337-7 (Version None)
Quarter: 2009Q4

REPORT INFORMATION
  Report Type: 
  Country: None (occurrence: None)
  Receive Date: 20091127
  Receipt Date: 20090813
  Transmission Date: 20100525
  Serious: No
  Sender: FDA-Public Use
  Company Number: US-AMGEN-KDL314043

PATIENT
  Sex: Male
  Weight: 90.3 kg

DRUGS (4)
  1. ENBREL [Suspect]
     Indication: RHEUMATOID ARTHRITIS
     Route: 058
     Dates: start: 20080929, end: 20090306
  2. PREDNISONE TAB [Concomitant]
  3. ETODOLAC [Concomitant]
  4. METHOTREXATE [Concomitant]

REACTIONS (4)
  - INJECTION SITE PAIN [None]
  - RASH GENERALISED [None]
  - RASH PAPULAR [None]
  - RASH PRURITIC [None]
